FAERS Safety Report 10261089 (Version 2)
Quarter: 2014Q3

REPORT INFORMATION
  Report Type: Spontaneous
  Country: US (occurrence: None)
  Receive Date: 20140623
  Receipt Date: 20140707
  Transmission Date: 20150326
  Serious: Yes (Hospitalization)
  Sender: FDA-Public Use
  Company Number: UNT-2014-001425

PATIENT
  Age: 45 Year
  Sex: Male
  Weight: 88.9 kg

DRUGS (7)
  1. REMODULIN [Suspect]
     Active Substance: TREPROSTINIL
     Indication: PULMONARY ARTERIAL HYPERTENSION
     Dosage: CONTINUING
     Route: 041
     Dates: start: 20061115
  2. COUMADIN/0014802/WARFARIN SODIUM) [Concomitant]
  3. LASIX [Suspect]
     Active Substance: FUROSEMIDE
  4. IRON (IRON) [Concomitant]
     Active Substance: IRON
  5. ALDACTONE [Concomitant]
     Active Substance: SPIRONOLACTONE
  6. KCL (POTASSIUM CHLORIDE) [Concomitant]
  7. ADCIRCA (TADALFIL) [Concomitant]

REACTIONS (3)
  - Syncope [None]
  - Right ventricular failure [None]
  - Pulmonary arterial hypertension [None]

NARRATIVE: CASE EVENT DATE: 20140521
